FAERS Safety Report 7424259-1 (Version None)
Quarter: 2011Q2

REPORT INFORMATION
  Report Type: 
  Country: None (occurrence: None)
  Receive Date: 20110419
  Receipt Date: 20110413
  Transmission Date: 20111010
  Serious: Yes (Hospitalization)
  Sender: FDA-Public Use
  Company Number: US-BRISTOL-MYERS SQUIBB COMPANY-15670938

PATIENT
  Age: 56 Year
  Sex: Male

DRUGS (3)
  1. OXYCONTIN [Suspect]
     Indication: PAIN
  2. ABILIFY [Suspect]
     Indication: DEPRESSION
     Dosage: 1MG THEN DOSE INCREASED TO 2MG
  3. ANTIDEPRESSANT [Concomitant]

REACTIONS (1)
  - MENTAL STATUS CHANGES [None]
